FAERS Safety Report 25273633 (Version 1)
Quarter: 2025Q2

REPORT INFORMATION
  Report Type: Spontaneous
  Country: US (occurrence: None)
  Receive Date: 20250506
  Receipt Date: 20250506
  Transmission Date: 20250716
  Serious: Yes (Other)
  Sender: FDA-CTU
  Company Number: None

PATIENT
  Age: 37 Year
  Sex: Female
  Weight: 78.75 kg

DRUGS (9)
  1. ZEPBOUND [Suspect]
     Active Substance: TIRZEPATIDE
     Indication: Inflammation
     Route: 058
     Dates: start: 20250505, end: 20250505
  2. ZEPBOUND [Suspect]
     Active Substance: TIRZEPATIDE
     Indication: Lipoedema
  3. LO LOESTRIN FE [Concomitant]
     Active Substance: ETHINYL ESTRADIOL\NORETHINDRONE ACETATE
  4. ZYRTEC [Concomitant]
     Active Substance: CETIRIZINE HYDROCHLORIDE
  5. DUPIXENT [Concomitant]
     Active Substance: DUPILUMAB
  6. Pepcid ac (for MCAS/allergies) [Concomitant]
  7. Xanaflex (as needed, not taking around time of injection) [Concomitant]
  8. Adderall 10MG XR [Concomitant]
  9. Sprouts Lemon Blueberry Protein Powder [Concomitant]

REACTIONS (10)
  - Chills [None]
  - Pain [None]
  - Nausea [None]
  - Chest pain [None]
  - Vomiting [None]
  - Cold sweat [None]
  - Migraine [None]
  - Abdominal distension [None]
  - Breast swelling [None]
  - Gastrooesophageal reflux disease [None]

NARRATIVE: CASE EVENT DATE: 20250505
